FAERS Safety Report 6806745-8 (Version None)
Quarter: 2010Q2

REPORT INFORMATION
  Report Type: 
  Country: None (occurrence: None)
  Receive Date: 20100629
  Receipt Date: 20080709
  Transmission Date: 20101027
  Serious: Yes (Other)
  Sender: FDA-Public Use
  Company Number: US-PFIZER INC-2008038266

PATIENT
  Sex: Female
  Weight: 50.909 kg

DRUGS (2)
  1. ZYVOX [Suspect]
     Indication: ESCHERICHIA INFECTION
     Dates: start: 20080311, end: 20080315
  2. ZYVOX [Suspect]
     Indication: LOCALISED INFECTION

REACTIONS (4)
  - COUGH [None]
  - NASOPHARYNGITIS [None]
  - PRURITUS GENERALISED [None]
  - RASH GENERALISED [None]
